FAERS Safety Report 8565160-X (Version None)
Quarter: 2012Q3

REPORT INFORMATION
  Report Type: 
  Country: None (occurrence: None)
  Receive Date: 20120803
  Receipt Date: 20120731
  Transmission Date: 20120928
  Serious: No
  Sender: FDA-Public Use
  Company Number: US-PFIZER INC-2012159678

PATIENT
  Sex: Male

DRUGS (14)
  1. XALATAN [Concomitant]
     Dosage: 1 DROP IN EACH EYE PM DAILY
     Dates: start: 20111020
  2. INLYTA [Suspect]
     Indication: METASTATIC RENAL CELL CARCINOMA
     Dosage: 5 MG, 2X/DAY
     Dates: start: 20120612
  3. ICAPS [Concomitant]
     Dosage: TWICE DAILY
     Dates: start: 20111020
  4. INDAPAMIDE [Concomitant]
     Dosage: 2.5 MG, 1X/DAY
     Dates: start: 20111020
  5. ALLOPURINOL [Concomitant]
     Dosage: 100 MG, 1X/DAY, 1/2 TABS
     Dates: start: 20111020
  6. SYNTHROID [Concomitant]
     Dosage: 50 UG, 1X/DAY
     Dates: start: 20111020
  7. AMLODIPINE BESYLATE AND BENAZEPRIL HCL [Concomitant]
     Dosage: 5-20MG DAILY
     Dates: start: 20111020
  8. INLYTA [Suspect]
     Indication: METASTASES TO LIVER
  9. ARICEPT [Concomitant]
     Dosage: 23 MG, 1X/DAY
     Dates: start: 20111020
  10. ASPIRIN [Concomitant]
     Dosage: 325 MG, 1X/DAY, 1/2 TAB
     Dates: start: 20111020
  11. PRILOSEC [Concomitant]
     Dosage: 40 MG, 1X/DAY
     Dates: start: 20120131
  12. PREDNISONE [Concomitant]
     Dosage: 10 MG, 2X/DAY
     Route: 048
     Dates: start: 20120416
  13. DORZOLAMIDE HYDROCHLORIDE [Concomitant]
     Dosage: 1 DROP IN EACH EYE DAILY
     Dates: start: 20111020
  14. PROCHLORPERAZINE MALEATE [Concomitant]
     Indication: NAUSEA
     Dosage: 10 MG, 1 TAB Q 4-6 PRN
     Route: 048
     Dates: start: 20111219

REACTIONS (1)
  - PAIN IN EXTREMITY [None]
